FAERS Safety Report 22657340 (Version 1)
Quarter: 2023Q2

REPORT INFORMATION
  Report Type: Spontaneous
  Country: CN (occurrence: None)
  Receive Date: 20230630
  Receipt Date: 20230630
  Transmission Date: 20230722
  Serious: Yes (Life-Threatening)
  Sender: FDA-Public Use
  Company Number: CN-ROCHE-3378802

PATIENT
  Age: 67 Year
  Sex: Male

DRUGS (4)
  1. GAZYVA [Suspect]
     Active Substance: OBINUTUZUMAB
     Indication: Diffuse large B-cell lymphoma
     Dosage: D1/D2-D8-D15
     Route: 042
     Dates: start: 20220326, end: 20230411
  2. GAZYVA [Suspect]
     Active Substance: OBINUTUZUMAB
     Dosage: TREATMENT ON APRIL 24, 2022, MAY 22, 2022, JUNE 26, 2022, C2-C4
     Route: 042
  3. BENDAMUSTINE [Concomitant]
     Active Substance: BENDAMUSTINE
     Indication: Diffuse large B-cell lymphoma
     Dosage: GBI, D1-D2, 28 DAYS/CYCLE
     Route: 065
     Dates: start: 20220326
  4. IBRUTINIB [Concomitant]
     Active Substance: IBRUTINIB
     Indication: Diffuse large B-cell lymphoma
     Dosage: GBI, MONOTHERAPY
     Dates: start: 20220326

REACTIONS (3)
  - COVID-19 [Unknown]
  - Intentional product use issue [Unknown]
  - Drug intolerance [Unknown]

NARRATIVE: CASE EVENT DATE: 20221223
